FAERS Safety Report 10112234 (Version 1)
Quarter: 2014Q2

REPORT INFORMATION
  Report Type: Report from Study
  Country: NZ (occurrence: NZ)
  Receive Date: 20140425
  Receipt Date: 20140425
  Transmission Date: 20141212
  Serious: Yes (Hospitalization)
  Sender: FDA-Public Use
  Company Number: PHHO2014NZ005860

PATIENT
  Age: 84 Year
  Sex: Female

DRUGS (5)
  1. ACETYLSALICYLIC ACID [Suspect]
  2. BLINDED NO TREATMENT RECEIVED [Suspect]
     Indication: OSTEOPENIA
     Dosage: CODE NOT BROKEN
     Dates: start: 20110110
  3. BLINDED PLACEBO [Suspect]
     Indication: OSTEOPENIA
     Dosage: CODE NOT BROKEN
     Dates: start: 20110110
  4. BLINDED ZOLEDRONATE [Suspect]
     Indication: OSTEOPENIA
     Dosage: CODE NOT BROKEN
     Dates: start: 20110110
  5. DIPYRIDAMOLE [Suspect]

REACTIONS (1)
  - Rectal haemorrhage [Recovered/Resolved]
